FAERS Safety Report 22872857 (Version 5)
Quarter: 2024Q1

REPORT INFORMATION
  Report Type: Spontaneous
  Country: US (occurrence: US)
  Receive Date: 20230828
  Receipt Date: 20240326
  Transmission Date: 20240410
  Serious: Yes (Hospitalization, Other)
  Sender: FDA-Public Use
  Company Number: US-PFIZER INC-2019237381

PATIENT
  Age: 17 Year
  Sex: Male

DRUGS (2)
  1. BENEFIX [Suspect]
     Active Substance: COAGULATION FACTOR IX RECOMBINANT HUMAN\ISOPROPYL ALCOHOL
     Indication: Haemorrhage
     Dosage: 100 IU/KG, DAILY (6000 UNITS (+5%) = 100 UNITS/KG)
  2. BENEFIX [Suspect]
     Active Substance: COAGULATION FACTOR IX RECOMBINANT HUMAN\ISOPROPYL ALCOHOL
     Indication: Factor IX deficiency
     Dosage: 100 IU/KG, 2X/DAY (7500 UNITS (+5% ) = 100 UNITS/KG TWICE A DAY DOSING X 7 DAYS )

REACTIONS (2)
  - Haematoma [Not Recovered/Not Resolved]
  - Muscle haemorrhage [Unknown]
